FAERS Safety Report 9701136 (Version 1)
Quarter: 2013Q4

REPORT INFORMATION
  Report Type: Spontaneous
  Country: GB (occurrence: GB)
  Receive Date: 20131121
  Receipt Date: 20131121
  Transmission Date: 20140711
  Serious: Yes (Life-Threatening, Hospitalization)
  Sender: FDA-Public Use
  Company Number: GB-UCBSA-103568

PATIENT
  Age: 20 Year
  Sex: Male

DRUGS (6)
  1. LEVETIRACETAM [Suspect]
  2. CARBAMAZEPINE [Suspect]
  3. METARAMINOL [Concomitant]
     Dosage: UNKNOWN DOSE
  4. BICARBONATE [Concomitant]
     Dosage: 1.26%
  5. PROPOFOL [Concomitant]
     Indication: SEDATION
     Dosage: UNKNOWN DOSE
  6. MULTI-DOSE ACTIVATED CHARCOAL [Concomitant]
     Indication: PRODUCT USED FOR UNKNOWN INDICATION
     Dosage: UNKNOWN DOSE

REACTIONS (9)
  - Cardiac arrest [Unknown]
  - Coma scale abnormal [Unknown]
  - Hypotension [Unknown]
  - Bundle branch block right [Unknown]
  - Grand mal convulsion [Unknown]
  - Dysarthria [Unknown]
  - Confusional state [Unknown]
  - Agitation [Unknown]
  - Intentional overdose [Unknown]
